FAERS Safety Report 6751202-0 (Version None)
Quarter: 2010Q2

REPORT INFORMATION
  Report Type: 
  Country: None (occurrence: None)
  Receive Date: 20100602
  Receipt Date: 20100525
  Transmission Date: 20101027
  Serious: Yes (Hospitalization)
  Sender: FDA-Public Use
  Company Number: JP-JNJFOC-20091106053

PATIENT
  Sex: Male
  Weight: 73 kg

DRUGS (26)
  1. FENTANYL [Suspect]
     Indication: PROCEDURAL PAIN
     Route: 062
  2. FENTANYL [Suspect]
     Indication: COMPLEX REGIONAL PAIN SYNDROME
     Route: 062
  3. FENTANYL [Suspect]
     Indication: POST HERPETIC NEURALGIA
     Route: 062
  4. FENTANYL [Suspect]
     Route: 062
  5. FENTANYL [Suspect]
     Route: 062
  6. FENTANYL [Suspect]
     Route: 062
  7. LOXONIN [Concomitant]
     Indication: TRIGEMINAL NEURALGIA
     Route: 048
  8. LOXOPROFEN [Concomitant]
     Indication: TRIGEMINAL NEURALGIA
     Route: 048
  9. LOXOPROFEN [Concomitant]
     Route: 048
  10. PROCHLORPERAZINE [Concomitant]
     Indication: PROPHYLAXIS OF NAUSEA AND VOMITING
     Route: 048
  11. MORPHINE HYDROCHLORIDE [Concomitant]
     Indication: TRIGEMINAL NEURALGIA
     Route: 048
  12. SELBEX [Concomitant]
     Indication: GASTRITIS PROPHYLAXIS
     Route: 048
  13. SELBEX [Concomitant]
     Route: 048
  14. RESLIN [Concomitant]
     Indication: TRIGEMINAL NEURALGIA
     Route: 048
  15. CANDESARTAN CILEXETIL [Concomitant]
     Indication: HYPERTENSION
     Route: 048
  16. CANDESARTAN CILEXETIL [Concomitant]
     Route: 048
  17. CANDESARTAN CILEXETIL [Concomitant]
     Route: 048
  18. AMLODIN OD [Concomitant]
     Indication: HYPERTENSION
     Route: 048
  19. AMLODIN OD [Concomitant]
     Route: 048
  20. AMLODIN OD [Concomitant]
     Route: 048
  21. ALLOZYM [Concomitant]
     Indication: HYPERURICAEMIA
     Route: 048
  22. ALLOZYM [Concomitant]
     Route: 048
  23. ALLOZYM [Concomitant]
     Route: 048
  24. BIO-THREE [Concomitant]
     Indication: BOWEL MOVEMENT IRREGULARITY
     Route: 048
  25. MAGLAX [Concomitant]
     Indication: CONSTIPATION PROPHYLAXIS
     Route: 048
  26. KREMEZIN [Concomitant]
     Indication: RENAL FAILURE CHRONIC
     Route: 048
     Dates: start: 20091126

REACTIONS (1)
  - RENAL IMPAIRMENT [None]
